FAERS Safety Report 4399703-7 (Version None)
Quarter: 2004Q3

REPORT INFORMATION
  Report Type: 
  Country: None (occurrence: None)
  Receive Date: 20040713
  Receipt Date: 20040629
  Transmission Date: 20050211
  Serious: Yes (Hospitalization)
  Sender: FDA-Public Use
  Company Number: US-JNJFOC-20040205902

PATIENT
  Age: 70 Year
  Sex: Female

DRUGS (25)
  1. INFLIXIMAB (INFLIXIMAB, RECOMBINANT) LYOPHILIZED POWDER [Suspect]
     Dosage: INTRAVENOUS (SEE IMAGE)
     Dates: start: 20001023
  2. METHOTREXATE [Concomitant]
  3. PREDNISONE [Concomitant]
  4. DARVOCET [Concomitant]
  5. XANAX [Concomitant]
  6. PAXIL [Concomitant]
  7. PREVACID [Concomitant]
  8. SYNTHROID [Concomitant]
  9. IMDUR [Concomitant]
  10. ALLEGRA [Concomitant]
  11. POTASSIUM (POTASSIUM) [Concomitant]
  12. ESTROGEN (ESTROGEN NOS) [Concomitant]
  13. FOLIC ACID [Concomitant]
  14. AZMACORT [Concomitant]
  15. NASONEX [Concomitant]
  16. CALCIUM + D (CALCIUM) [Concomitant]
  17. LEXAPRO [Concomitant]
  18. CLARITIN [Concomitant]
  19. VITAMIN E [Concomitant]
  20. MIRALAX [Concomitant]
  21. NORVASC [Concomitant]
  22. SINGULAIR [Concomitant]
  23. ALBUTEROL [Concomitant]
  24. IPRATROPIUM BROMIDE [Concomitant]
  25. VITAMIN C (ASCORBIC ACID) [Concomitant]

REACTIONS (3)
  - CHOLECYSTITIS [None]
  - DIVERTICULUM [None]
  - INTESTINAL OBSTRUCTION [None]
